FAERS Safety Report 4977149-8 (Version None)
Quarter: 2006Q1

REPORT INFORMATION
  Report Type: 
  Country: None (occurrence: None)
  Receive Date: 20060223
  Receipt Date: 20050422
  Transmission Date: 20060701
  Serious: Yes (Other)
  Sender: FDA-Public Use
  Company Number: HQWYE257925APR05

PATIENT
  Sex: Male

DRUGS (2)
  1. EFFEXOR [Suspect]
     Dosage: 225 MG 1X PER 1 DAY, ORAL
     Route: 048
  2. WELLBUTRIN XL [Suspect]
     Dosage: 150 MG 3X PER 1 DAY, ORAL - SEE IMAGE
     Route: 048

REACTIONS (3)
  - CONVULSION [None]
  - DRUG WITHDRAWAL SYNDROME [None]
  - MUSCLE TWITCHING [None]
